FAERS Safety Report 11611718 (Version 1)
Quarter: 2015Q4

REPORT INFORMATION
  Report Type: Other
  Country: CA (occurrence: CA)
  Receive Date: 20151008
  Receipt Date: 20151008
  Transmission Date: 20160304
  Serious: Yes (Hospitalization, Other)
  Sender: FDA-Public Use
  Company Number: CA-APOTEX-2015AP013101

PATIENT
  Age: 13 Year
  Sex: Female

DRUGS (1)
  1. CEFOXITIN [Suspect]
     Active Substance: CEFOXITIN SODIUM
     Indication: INFECTION
     Dosage: 1 G, EVERY 8 HOURS
     Route: 042

REACTIONS (2)
  - Renal impairment [Recovered/Resolved]
  - Blood creatine increased [Recovered/Resolved]
